FAERS Safety Report 20201969 (Version 2)
Quarter: 2021Q4

REPORT INFORMATION
  Report Type: Report from Study
  Country: TW (occurrence: None)
  Receive Date: 20211217
  Receipt Date: 20211220
  Transmission Date: 20220303
  Serious: Yes (Life-Threatening, Hospitalization, Other)
  Sender: FDA-Public Use
  Company Number: TW-Eisai Medical Research-EC-2021-105319

PATIENT
  Age: 72 Year
  Sex: Male
  Weight: 60.1 kg

DRUGS (12)
  1. LENVATINIB [Suspect]
     Active Substance: LENVATINIB
     Indication: Hepatocellular carcinoma
     Dosage: NOT ADMINISTERED
     Route: 048
  2. QUAVONLIMAB [Suspect]
     Active Substance: QUAVONLIMAB
     Indication: Hepatocellular carcinoma
     Dosage: NOT ADMINISTERED
     Route: 042
  3. VEMLIDY [Concomitant]
     Active Substance: TENOFOVIR ALAFENAMIDE FUMARATE
     Dates: start: 20210930
  4. CALCIUM CHLORIDE [Concomitant]
     Active Substance: CALCIUM CHLORIDE
     Route: 042
     Dates: start: 20211215, end: 20211215
  5. METOCLOPRAMIDE [Concomitant]
     Active Substance: METOCLOPRAMIDE
     Route: 042
     Dates: start: 20211215, end: 20211215
  6. SODIUM POLYSTYRENE SULFONATE [Concomitant]
     Active Substance: SODIUM POLYSTYRENE SULFONATE
     Dates: start: 20211215, end: 20211215
  7. PROCHLORPERAZINE [Concomitant]
     Active Substance: PROCHLORPERAZINE
     Route: 042
     Dates: start: 20211215, end: 20211215
  8. PANTOPRAZOLE [Concomitant]
     Active Substance: PANTOPRAZOLE
     Route: 042
     Dates: start: 20211215, end: 20211215
  9. CEFIXIME [Concomitant]
     Active Substance: CEFIXIME
     Route: 048
     Dates: start: 20211130, end: 20211202
  10. BISACODYL [Concomitant]
     Active Substance: BISACODYL
     Route: 048
     Dates: start: 20211130, end: 20211201
  11. DEXTROSE [Concomitant]
     Active Substance: DEXTROSE
     Route: 042
     Dates: start: 20211215, end: 20211215
  12. PEMBROLIZUMAB [Suspect]
     Active Substance: PEMBROLIZUMAB

REACTIONS (1)
  - Tumour rupture [Not Recovered/Not Resolved]

NARRATIVE: CASE EVENT DATE: 20211215
